FAERS Safety Report 21634670 (Version 1)
Quarter: 2022Q4

REPORT INFORMATION
  Report Type: Spontaneous
  Country: US (occurrence: US)
  Receive Date: 20221123
  Receipt Date: 20221123
  Transmission Date: 20230113
  Serious: Yes (Hospitalization)
  Sender: FDA-Public Use
  Company Number: US-MYLANLABS-2022M1128583

PATIENT
  Age: 40 Year
  Sex: Female

DRUGS (4)
  1. SODIUM NITROPRUSSIDE [Suspect]
     Active Substance: SODIUM NITROPRUSSIDE
     Indication: Arterial stenosis
     Dosage: UNK, DRIP
     Route: 042
  2. NITROGLYCERIN [Suspect]
     Active Substance: NITROGLYCERIN
     Indication: Arterial stenosis
     Dosage: UNK
     Route: 061
  3. NITROGLYCERIN [Suspect]
     Active Substance: NITROGLYCERIN
     Indication: Arterial stenosis
     Dosage: UNK
     Route: 013
  4. PHENTOLAMINE [Suspect]
     Active Substance: PHENTOLAMINE
     Indication: Arterial stenosis
     Dosage: 5 MILLIGRAM
     Route: 058

REACTIONS (2)
  - Hypotension [Unknown]
  - Drug ineffective [Unknown]
